FAERS Safety Report 10220177 (Version 1)
Quarter: 2014Q2

REPORT INFORMATION
  Report Type: Report from Study
  Country: BR (occurrence: BR)
  Receive Date: 20140605
  Receipt Date: 20140605
  Transmission Date: 20141212
  Serious: Yes (Hospitalization, Other)
  Sender: FDA-Public Use
  Company Number: PHHY2014BR066844

PATIENT
  Sex: Female

DRUGS (6)
  1. RASILEZ [Suspect]
     Dosage: UNK UKN, UNK
  2. DIOVAN [Suspect]
     Dosage: 80 MG, UNK
  3. DIOVAN [Suspect]
     Dosage: 320 MG, UNK
  4. DIOVAN [Suspect]
     Dosage: 160 MG, UNK
  5. DIOVAN [Suspect]
     Dosage: 80 MG, 12 TO 12 HOURS TWICE A DAY
     Dates: start: 20140429
  6. LIPITOR [Suspect]
     Dosage: UNK UKN, UNK

REACTIONS (6)
  - Asthma [Unknown]
  - Pneumonia [Unknown]
  - Urinary tract infection [Unknown]
  - Arrhythmia [Unknown]
  - Cardiac disorder [Unknown]
  - Coronary artery disease [Unknown]
